FAERS Safety Report 7139324-6 (Version None)
Quarter: 2010Q4

REPORT INFORMATION
  Report Type: 
  Country: None (occurrence: None)
  Receive Date: 20101206
  Receipt Date: 20101124
  Transmission Date: 20110411
  Serious: Yes (Hospitalization, Other)
  Sender: FDA-Public Use
  Company Number: ES-ELI_LILLY_AND_COMPANY-ES201004005363

PATIENT
  Sex: Female
  Weight: 65.5 kg

DRUGS (7)
  1. FORTEO [Suspect]
     Indication: OSTEOPOROSIS
     Dosage: 20 UG, DAILY (1/D)
     Route: 058
     Dates: start: 20091128, end: 20100407
  2. IBERCAL [Concomitant]
     Indication: OSTEOPOROSIS
     Dosage: 1 D/F, 24HRS
     Route: 065
  3. OPIREN [Concomitant]
     Dosage: 1 D/F, 24HRS
     Route: 048
  4. UROTROL [Concomitant]
     Dosage: 1 D/F, 24HRS
     Route: 048
  5. CLOPIDOGREL [Concomitant]
     Dosage: 1 D/F, 24HRS
     Route: 048
  6. PERINDOPRIL [Concomitant]
     Indication: HYPERTENSION
     Dosage: 1 D/F, 24HRS
     Route: 048
  7. HIDROSALURETIL [Concomitant]
     Indication: HYPERTENSION
     Dosage: 1 D/F, 24HRS
     Route: 048

REACTIONS (4)
  - APHASIA [None]
  - HEMIPARESIS [None]
  - HIATUS HERNIA [None]
  - TRANSIENT ISCHAEMIC ATTACK [None]
